FAERS Safety Report 17377298 (Version 1)
Quarter: 2020Q1

REPORT INFORMATION
  Report Type: Spontaneous
  Country: US (occurrence: US)
  Receive Date: 20200122
  Receipt Date: 20200122
  Transmission Date: 20200409
  Serious: No
  Sender: FDA-Public Use
  Company Number: None

PATIENT
  Age: 65 Year
  Sex: Male

DRUGS (1)
  1. ZYTIGA [Suspect]
     Active Substance: ABIRATERONE ACETATE
     Route: 048
     Dates: start: 20190601

REACTIONS (6)
  - Therapy cessation [None]
  - Hot flush [None]
  - Skin laxity [None]
  - Musculoskeletal disorder [None]
  - Insurance issue [None]
  - Fatigue [None]

NARRATIVE: CASE EVENT DATE: 20200116
